FAERS Safety Report 24844312 (Version 1)
Quarter: 2025Q1

REPORT INFORMATION
  Report Type: Spontaneous
  Country: US (occurrence: None)
  Receive Date: 20250114
  Receipt Date: 20250114
  Transmission Date: 20250409
  Serious: Yes (Death)
  Sender: FDA-CTU
  Company Number: None

PATIENT
  Age: 24 Year
  Sex: Male
  Weight: 39.47 kg

DRUGS (5)
  1. BIKTARVY [Suspect]
     Active Substance: BICTEGRAVIR SODIUM\EMTRICITABINE\TENOFOVIR ALAFENAMIDE FUMARATE
     Indication: HIV infection
     Dosage: OTHER QUANTITY : 50/200/25MG;?FREQUENCY : DAILY;?
     Route: 048
     Dates: start: 20240927, end: 20250110
  2. insulin aspart flexpen injection [Concomitant]
  3. ferrous sulfate 325 mg tablets [Concomitant]
  4. OLANZAPINE [Concomitant]
     Active Substance: OLANZAPINE
  5. ammonium lac 12% cream [Concomitant]

REACTIONS (1)
  - Death [None]

NARRATIVE: CASE EVENT DATE: 20250110
